FAERS Safety Report 20693341 (Version 2)
Quarter: 2022Q2

REPORT INFORMATION
  Report Type: Spontaneous
  Country: JP (occurrence: JP)
  Receive Date: 20220410
  Receipt Date: 20220422
  Transmission Date: 20220721
  Serious: Yes (Hospitalization, Other)
  Sender: FDA-Public Use
  Company Number: JP-ONO-2022JP008759

PATIENT

DRUGS (3)
  1. OPDIVO [Suspect]
     Active Substance: NIVOLUMAB
     Indication: Head and neck cancer
     Dosage: UNK
     Route: 041
  2. PACLITAXEL [Concomitant]
     Active Substance: PACLITAXEL
     Indication: Head and neck cancer
     Route: 065
  3. CETUXIMAB [Concomitant]
     Active Substance: CETUXIMAB
     Indication: Head and neck cancer
     Route: 065

REACTIONS (2)
  - Cardiac tamponade [Not Recovered/Not Resolved]
  - Malignant neoplasm progression [Unknown]
